FAERS Safety Report 10304822 (Version 2)
Quarter: 2014Q3

REPORT INFORMATION
  Report Type: Report from Study
  Country: CA (occurrence: CA)
  Receive Date: 20140715
  Receipt Date: 20140821
  Transmission Date: 20150326
  Serious: Yes (Death, Hospitalization, Other)
  Sender: FDA-Public Use
  Company Number: PHHY2014CA085981

PATIENT
  Sex: Male

DRUGS (3)
  1. CLOZARIL [Suspect]
     Active Substance: CLOZAPINE
     Indication: SCHIZOPHRENIA
     Dosage: 400 MG, QHS
     Route: 048
     Dates: start: 20060116, end: 20090805
  2. LITHIUM [Concomitant]
     Active Substance: LITHIUM CARBONATE
     Dosage: UNK
  3. VALPROIC ACID. [Concomitant]
     Active Substance: VALPROIC ACID
     Dosage: UNK

REACTIONS (2)
  - Multiple sclerosis [Fatal]
  - Sepsis [Unknown]
